FAERS Safety Report 7750177-5 (Version None)
Quarter: 2011Q3

REPORT INFORMATION
  Report Type: 
  Country: None (occurrence: None)
  Receive Date: 20110914
  Receipt Date: 20110914
  Transmission Date: 20111222
  Serious: Yes (Disabling)
  Sender: FDA-Public Use
  Company Number: None

PATIENT
  Age: 54 Year
  Sex: Male
  Weight: 104.32 kg

DRUGS (2)
  1. SEROQUEL [Concomitant]
     Indication: BIPOLAR I DISORDER
     Dosage: 300
     Route: 048
     Dates: start: 19990701, end: 20110913
  2. DEPAKOTE [Suspect]
     Indication: BIPOLAR I DISORDER
     Dosage: 500
     Route: 048
     Dates: start: 19990701, end: 20110913

REACTIONS (2)
  - GLAUCOMA [None]
  - DIABETES MELLITUS INADEQUATE CONTROL [None]
